FAERS Safety Report 9956325 (Version 2)
Quarter: 2014Q1

REPORT INFORMATION
  Report Type: Spontaneous
  Country: US (occurrence: US)
  Receive Date: 20140304
  Receipt Date: 20140304
  Transmission Date: 20141002
  Serious: Yes (Disabling)
  Sender: FDA-Public Use
  Company Number: US-GE HEALTHCARE MEDICAL DIAGNOSTICS-OSCN-PR-0805S-0284

PATIENT
  Age: 47 Year
  Sex: Male

DRUGS (4)
  1. OMNISCAN [Suspect]
     Indication: OEDEMA PERIPHERAL
     Route: 042
     Dates: start: 20050427, end: 20050427
  2. OMNISCAN [Suspect]
     Route: 042
     Dates: start: 20050407, end: 20050407
  3. GADOLINIUM (UNSPECIFIED) [Suspect]
     Indication: OSTEOMYELITIS
     Route: 042
     Dates: start: 20050418, end: 20050418
  4. GADOLINIUM (UNSPECIFIED) [Suspect]
     Indication: ARTHROTOMY

REACTIONS (1)
  - Nephrogenic systemic fibrosis [Not Recovered/Not Resolved]
